FAERS Safety Report 8486746 (Version 2)
Quarter: 2012Q4

REPORT INFORMATION
  Report Type: 
  Country: BR (occurrence: BR)
  Receive Date: 20120402
  Receipt Date: 20121011
  Transmission Date: 20130627
  Serious: Yes (Hospitalization, Disabling)
  Sender: FDA-Public Use
  Company Number: BR-ASTRAZENECA-2012SE20319

PATIENT
  Age: 61 Year
  Sex: Male
  Weight: 112 kg

DRUGS (3)
  1. ATACAND HCT [Suspect]
     Indication: HYPERTENSION
     Dosage: 16+12.5 mg daily
     Route: 048
     Dates: start: 1999
  2. DIOPRESS [Concomitant]
     Indication: HYPERTENSION
     Route: 048
     Dates: start: 1999
  3. ASPRINA PREVENT [Concomitant]
     Indication: PROPHYLAXIS
     Route: 048
     Dates: start: 1999

REACTIONS (4)
  - Myocardial infarction [Recovered/Resolved]
  - Muscular weakness [Recovered/Resolved]
  - Depression [Recovering/Resolving]
  - Blood cholesterol increased [Not Recovered/Not Resolved]
